FAERS Safety Report 6013030-3 (Version None)
Quarter: 2008Q4

REPORT INFORMATION
  Report Type: 
  Country: None (occurrence: None)
  Receive Date: 20081219
  Receipt Date: 20081210
  Transmission Date: 20090506
  Serious: Yes (Hospitalization, Other)
  Sender: FDA-Public Use
  Company Number: US-ABBOTT-08P-163-0492295-00

PATIENT
  Age: 45 Year
  Sex: Female

DRUGS (2)
  1. HUMIRA [Suspect]
     Indication: DRUG USE FOR UNKNOWN INDICATION
  2. WARFARIN SODIUM [Concomitant]
     Indication: PULMONARY EMBOLISM

REACTIONS (4)
  - MENISCUS LESION [None]
  - PULMONARY EMBOLISM [None]
  - SWOLLEN TONGUE [None]
  - TONGUE NEOPLASM MALIGNANT STAGE UNSPECIFIED [None]
